FAERS Safety Report 15632360 (Version 2)
Quarter: 2018Q4

REPORT INFORMATION
  Report Type: Spontaneous
  Country: BR (occurrence: BR)
  Receive Date: 20181119
  Receipt Date: 20181129
  Transmission Date: 20190205
  Serious: Yes (Other)
  Sender: FDA-Public Use
  Company Number: BR-PFIZER INC-2018471507

PATIENT
  Age: 69 Year
  Sex: Female

DRUGS (1)
  1. XALATAN [Suspect]
     Active Substance: LATANOPROST
     Dosage: 2 GTT, 1X/DAILY (1 DROP IN EACH EYE, SINGLE)
     Route: 047
     Dates: start: 201709, end: 201709

REACTIONS (6)
  - Ocular hyperaemia [Recovered/Resolved]
  - Eye swelling [Recovered/Resolved]
  - Drug hypersensitivity [Recovered/Resolved]
  - Headache [Recovered/Resolved]
  - Blindness unilateral [Not Recovered/Not Resolved]
  - Intraocular pressure increased [Recovered/Resolved]

NARRATIVE: CASE EVENT DATE: 201709
